FAERS Safety Report 4795814-2 (Version None)
Quarter: 2005Q4

REPORT INFORMATION
  Report Type: 
  Country: None (occurrence: None)
  Receive Date: 20051007
  Receipt Date: 20050924
  Transmission Date: 20060501
  Serious: Yes (Other)
  Sender: FDA-Public Use
  Company Number: 2005132378

PATIENT
  Age: 3 Year
  Sex: Male
  Weight: 14.0615 kg

DRUGS (2)
  1. CHILDREN'S PEDIACARE MULTI-SYMPTOM COLD (PSEUDOEPHEDRINE, DEXTROMETHOR [Suspect]
     Indication: ACCIDENTAL EXPOSURE
     Dosage: 1/2 BOTTLE ONCE; ORAL
     Route: 048
     Dates: start: 20050924, end: 20050924
  2. MACROGOL [Concomitant]

REACTIONS (3)
  - ACCIDENTAL DRUG INTAKE BY CHILD [None]
  - COORDINATION ABNORMAL [None]
  - MYDRIASIS [None]
